FAERS Safety Report 9121803 (Version 3)
Quarter: 2013Q1

REPORT INFORMATION
  Report Type: Report from Study
  Country: US (occurrence: US)
  Receive Date: 20130207
  Receipt Date: 20130328
  Transmission Date: 20140127
  Serious: No
  Sender: FDA-Public Use
  Company Number: US-VERTEX PHARMACEUTICALS INC.-2013-001677

PATIENT
  Age: 52 Year
  Sex: Female
  Weight: 85 kg

DRUGS (4)
  1. VX-950 (TELAPREVIR) [Suspect]
     Indication: HEPATITIS C
     Dosage: 750 MG, TID
     Route: 048
     Dates: start: 20130121
  2. RIBASPHERE [Suspect]
     Indication: HEPATITIS C
     Dosage: 600 MG, BID
     Route: 048
     Dates: start: 20130121
  3. RIBASPHERE [Suspect]
     Dosage: 200 MG AM, 400 MG PM
     Route: 048
  4. PEGASYS [Suspect]
     Indication: HEPATITIS C
     Dosage: 180 ?G, WEEKLY
     Route: 058
     Dates: start: 20130121

REACTIONS (10)
  - Muscle spasms [Unknown]
  - Gingival pain [Unknown]
  - Decreased appetite [Unknown]
  - Asthenia [Unknown]
  - Anaemia [Unknown]
  - Rash erythematous [Unknown]
  - Rash generalised [Unknown]
  - Pruritus generalised [Unknown]
  - Anorectal discomfort [Unknown]
  - Dysgeusia [Unknown]
